FAERS Safety Report 9778247 (Version 1)
Quarter: 2013Q4

REPORT INFORMATION
  Report Type: Spontaneous
  Country: US (occurrence: US)
  Receive Date: 20131223
  Receipt Date: 20131223
  Transmission Date: 20140711
  Serious: Yes (Hospitalization, Other)
  Sender: FDA-Public Use
  Company Number: US-ELI_LILLY_AND_COMPANY-US201312004765

PATIENT
  Age: 87 Year
  Sex: Female

DRUGS (11)
  1. HUMALOG LISPRO [Suspect]
     Indication: TYPE 2 DIABETES MELLITUS
     Dosage: 4 U, BEFORE BREAKFAST
     Route: 065
  2. HUMALOG LISPRO [Suspect]
     Dosage: 6 U, BEFORE LUNCH AND DINNER
     Route: 065
  3. LANTUS [Concomitant]
     Dosage: 24 U, BEFORE BREAKFAST
  4. SPIRONOLACTONE [Concomitant]
     Dosage: 25 MG, QD
  5. CARVEDILOL [Concomitant]
     Dosage: 25 MG, BID
  6. CALTRATE + D [Concomitant]
     Dosage: 600 DF, BID
  7. WARFARIN [Concomitant]
     Dosage: UNK, QD
  8. MULTI-VIT [Concomitant]
  9. LOSARTAN [Concomitant]
     Dosage: 0.5 DF, QD
  10. FERREX [Concomitant]
     Dosage: 150 MG, QD
  11. ATORVASTATIN [Concomitant]
     Dosage: UNK, QD

REACTIONS (4)
  - Fall [Recovered/Resolved]
  - Balance disorder [Recovered/Resolved]
  - Hip fracture [Recovered/Resolved]
  - Skin lesion [Recovered/Resolved]
